FAERS Safety Report 23319634 (Version 1)
Quarter: 2023Q4

REPORT INFORMATION
  Report Type: Spontaneous
  Country: US (occurrence: US)
  Receive Date: 20231220
  Receipt Date: 20231220
  Transmission Date: 20240109
  Serious: Yes (Life-Threatening, Hospitalization, Other)
  Sender: FDA-Public Use
  Company Number: US-SERVIER-S23014504

PATIENT

DRUGS (6)
  1. ASPARLAS [Suspect]
     Active Substance: CALASPARGASE PEGOL-MKNL
     Indication: B-cell type acute leukaemia
     Dosage: 2500 UNITS/M2 (4575 UNITS), D4
     Route: 042
     Dates: start: 20231121, end: 20231121
  2. VINCRISTINE SULFATE [Suspect]
     Active Substance: VINCRISTINE SULFATE
     Indication: B-cell type acute leukaemia
     Dosage: 1.5 MG/M2 ON D1 (2 MG), D8, D15, D22
     Route: 042
     Dates: start: 20231118
  3. DAUNORUBICIN [Suspect]
     Active Substance: DAUNORUBICIN
     Indication: B-cell type acute leukaemia
     Dosage: 25 MG/M2 ON D1 (46 MG), D8, D15, D22
     Route: 042
     Dates: start: 20231118
  4. PREDNISONE [Suspect]
     Active Substance: PREDNISONE
     Indication: B-cell type acute leukaemia
     Dosage: 30 MG/M2 BID, (55 MG) D1-D14
     Route: 048
     Dates: start: 20231118
  5. METHOTREXATE [Suspect]
     Active Substance: METHOTREXATE
     Indication: B-cell type acute leukaemia
     Dosage: 15 MG D1 (25 MG), D29
     Route: 037
     Dates: start: 20231118
  6. DEXRAZOXANE [Suspect]
     Active Substance: DEXRAZOXANE
     Indication: B-cell type acute leukaemia
     Dosage: 250 MG/M2 D1 (460 MG), D8, D15, D22
     Route: 042
     Dates: start: 20231118

REACTIONS (3)
  - Venoocclusive liver disease [Not Recovered/Not Resolved]
  - Acute hepatic failure [Not Recovered/Not Resolved]
  - Liver function test increased [Not Recovered/Not Resolved]

NARRATIVE: CASE EVENT DATE: 20231210
